FAERS Safety Report 5213208-2 (Version None)
Quarter: 2007Q1

REPORT INFORMATION
  Report Type: 
  Country: None (occurrence: None)
  Receive Date: 20070119
  Receipt Date: 20070117
  Transmission Date: 20070707
  Serious: Yes (Hospitalization)
  Sender: FDA-Public Use
  Company Number: IT-GLAXOSMITHKLINE-B0454638A

PATIENT
  Age: 84 Year
  Sex: Female

DRUGS (1)
  1. AUGMENTIN '125' [Suspect]
     Dosage: 3G PER DAY
     Route: 048
     Dates: start: 20061219, end: 20061220

REACTIONS (1)
  - HAEMATOMA [None]
